FAERS Safety Report 15806298 (Version 1)
Quarter: 2019Q1

REPORT INFORMATION
  Report Type: Spontaneous
  Country: US (occurrence: US)
  Receive Date: 20190109
  Receipt Date: 20190109
  Transmission Date: 20190417
  Serious: Yes (Disabling)
  Sender: FDA-Public Use
  Company Number: None

PATIENT
  Age: 86 Year
  Sex: Male
  Weight: 58.5 kg

DRUGS (8)
  1. VITAMIN C [Concomitant]
     Active Substance: ASCORBIC ACID
  2. CITRACAL 2 CAP [Concomitant]
  3. MULTIVITAMINS 1CAP [Concomitant]
  4. REPAGLINDE 1MG [Concomitant]
  5. PRESRVISION 2GEL [Concomitant]
  6. INSULIN 10UNIT [Concomitant]
  7. SIMVASTATIN 20 MG. [Concomitant]
  8. LEVOFLAXACIN 500MG. [Suspect]
     Active Substance: LEVOFLOXACIN
     Indication: URINARY TRACT INFECTION
     Dosage: ?          QUANTITY:20 TABLET(S);?
     Route: 048
     Dates: start: 20170113, end: 20170123

REACTIONS (4)
  - Pain in extremity [None]
  - Balance disorder [None]
  - Gait disturbance [None]
  - Tendon rupture [None]

NARRATIVE: CASE EVENT DATE: 20170120
